FAERS Safety Report 16234240 (Version 1)
Quarter: 2019Q2

REPORT INFORMATION
  Report Type: Report from Study
  Country: US (occurrence: US)
  Receive Date: 20190424
  Receipt Date: 20190424
  Transmission Date: 20190711
  Serious: Yes (Hospitalization, Other)
  Sender: FDA-Public Use
  Company Number: US-GILEAD-2019-0403978

PATIENT
  Age: 7 Year
  Sex: Female

DRUGS (1)
  1. AZTREONAM LYSINE [Suspect]
     Active Substance: AZTREONAM LYSINE
     Indication: CYSTIC FIBROSIS
     Dosage: 75 MG, TID 28 DAYS ON/OFF
     Route: 055
     Dates: start: 20190416

REACTIONS (1)
  - Lower respiratory tract infection bacterial [Unknown]

NARRATIVE: CASE EVENT DATE: 20190415
